FAERS Safety Report 7451150-7 (Version None)
Quarter: 2011Q2

REPORT INFORMATION
  Report Type: 
  Country: None (occurrence: None)
  Receive Date: 20110429
  Receipt Date: 20110429
  Transmission Date: 20111010
  Serious: Yes (Life-Threatening, Hospitalization)
  Sender: FDA-Public Use
  Company Number: None

PATIENT
  Age: 26 Year
  Sex: Female
  Weight: 86.1834 kg

DRUGS (4)
  1. MICROGESTIN FE 1/20 [Suspect]
     Indication: CONTRACEPTION
     Dosage: 1 PILL DAILY PO
     Route: 048
     Dates: start: 20110128, end: 20110225
  2. MICROGESTIN FE 1/20 [Suspect]
     Indication: BLOOD OESTROGEN DECREASED
     Dosage: 1 PILL DAILY PO
     Route: 048
     Dates: start: 20110128, end: 20110225
  3. MICROGESTIN FE 1/20 [Suspect]
     Indication: MIGRAINE
     Dosage: 1 PILL DAILY PO
     Route: 048
     Dates: start: 20110128, end: 20110225
  4. MICROGESTIN FE 1/20 [Suspect]
     Indication: ACNE
     Dosage: 1 PILL DAILY PO
     Route: 048
     Dates: start: 20110128, end: 20110225

REACTIONS (3)
  - MIGRAINE [None]
  - CONDITION AGGRAVATED [None]
  - PULMONARY EMBOLISM [None]
